FAERS Safety Report 5693220-X (Version None)
Quarter: 2008Q2

REPORT INFORMATION
  Report Type: 
  Country: None (occurrence: None)
  Receive Date: 20080403
  Receipt Date: 20080326
  Transmission Date: 20081010
  Serious: Yes (Life-Threatening, Hospitalization, Disabling)
  Sender: FDA-Public Use
  Company Number: US-AVENTIS-200811925US

PATIENT
  Sex: Female

DRUGS (3)
  1. KETEK [Suspect]
     Indication: SINUSITIS
     Dosage: DOSE: UNK
     Dates: start: 20060220
  2. KETEK [Suspect]
     Indication: BRONCHITIS
     Dosage: DOSE: UNK
     Dates: start: 20060220
  3. UNKNOWN DRUG [Concomitant]
     Dosage: DOSE: UNK

REACTIONS (9)
  - ABDOMINAL PAIN [None]
  - COLECTOMY TOTAL [None]
  - COMA [None]
  - DEPRESSED LEVEL OF CONSCIOUSNESS [None]
  - ISCHAEMIC HEPATITIS [None]
  - LEG AMPUTATION [None]
  - LIMB PROSTHESIS USER [None]
  - PSEUDOMEMBRANOUS COLITIS [None]
  - TOXIC EPIDERMAL NECROLYSIS [None]
